FAERS Safety Report 10931925 (Version 1)
Quarter: 2015Q1

REPORT INFORMATION
  Report Type: Spontaneous
  Country: GB (occurrence: GB)
  Receive Date: 20150319
  Receipt Date: 20150319
  Transmission Date: 20150721
  Serious: Yes (Other)
  Sender: FDA-Public Use
  Company Number: GB-BAXTER-2015BAX013473

PATIENT
  Age: 13 Year
  Sex: Male

DRUGS (2)
  1. KIOVIG [Suspect]
     Active Substance: HUMAN IMMUNOGLOBULIN G
     Dosage: 2G/KG
     Route: 042
  2. KIOVIG [Suspect]
     Active Substance: HUMAN IMMUNOGLOBULIN G
     Indication: GUILLAIN-BARRE SYNDROME
     Route: 042

REACTIONS (3)
  - Disease progression [Recovered/Resolved]
  - Guillain-Barre syndrome [Recovered/Resolved]
  - No therapeutic response [Recovered/Resolved]
